FAERS Safety Report 6033992-8 (Version None)
Quarter: 2009Q1

REPORT INFORMATION
  Report Type: 
  Country: None (occurrence: None)
  Receive Date: 20090109
  Receipt Date: 20090109
  Transmission Date: 20090719
  Serious: Yes (Hospitalization)
  Sender: FDA-Public Use
  Company Number: None

PATIENT
  Sex: Male
  Weight: 83 kg

DRUGS (11)
  1. CYTARABINE [Suspect]
     Dosage: 2840 MG
     Dates: start: 20081219
  2. ETOPOSIDE [Suspect]
     Dosage: 300 MG
  3. G-CSF (FILGRASTIM, AMGEN) [Suspect]
     Dosage: 2400 MCG
  4. IFOSFAMIDE [Suspect]
     Dosage: 7500 MG
  5. LEUCOVORIN CALCIUM [Suspect]
     Dosage: 100 MG
  6. MESNA [Suspect]
     Dosage: 2000 MG
  7. METHOTREXATE [Suspect]
     Dosage: 2865 MG
  8. RITUXIMAB (MOAB C2B8 ANTI CD20, CHIMERIC) [Suspect]
     Dosage: 1400 MG
  9. VINCRISTINE SULFATE [Suspect]
     Dosage: 2 MG
  10. DEXAMETHASONE TAB [Suspect]
     Dosage: 100 MG
  11. ALLOPURINOL [Suspect]
     Dosage: 1500 MG

REACTIONS (10)
  - BACTERIA STOOL IDENTIFIED [None]
  - BLOOD PRESSURE INCREASED [None]
  - CULTURE STOOL POSITIVE [None]
  - FEBRILE NEUTROPENIA [None]
  - HEADACHE [None]
  - HEART RATE INCREASED [None]
  - NAUSEA [None]
  - ORAL CANDIDIASIS [None]
  - OROPHARYNGEAL PAIN [None]
  - PHARYNGEAL OEDEMA [None]
